FAERS Safety Report 7391804-4 (Version None)
Quarter: 2011Q2

REPORT INFORMATION
  Report Type: 
  Country: None (occurrence: None)
  Receive Date: 20110404
  Receipt Date: 20110328
  Transmission Date: 20111010
  Serious: Yes (Other)
  Sender: FDA-Public Use
  Company Number: TW-ROCHE-766364

PATIENT
  Age: 60 Year
  Sex: Male

DRUGS (3)
  1. INSULIN [Concomitant]
     Indication: DIABETES MELLITUS
     Dosage: DRUG NAME; LONG ACTING INSULIN NOS
     Route: 051
  2. PEGASYS [Suspect]
     Indication: HEPATITIS C
     Route: 058
     Dates: start: 20100101, end: 20101001
  3. ROBATROL [Suspect]
     Indication: HEPATITIS C
     Dosage: FRQUENCY: PER DAY.
     Route: 048
     Dates: start: 20100101, end: 20101001

REACTIONS (3)
  - ANAEMIA [None]
  - NEUTROPHIL COUNT DECREASED [None]
  - OSMOTIC DEMYELINATION SYNDROME [None]
